FAERS Safety Report 7600760-2 (Version None)
Quarter: 2011Q3

REPORT INFORMATION
  Report Type: 
  Country: None (occurrence: None)
  Receive Date: 20110711
  Receipt Date: 20110627
  Transmission Date: 20111222
  Serious: Yes (Hospitalization)
  Sender: FDA-Public Use
  Company Number: CA-GENENTECH-254331

PATIENT
  Sex: Male
  Weight: 81.633 kg

DRUGS (5)
  1. ASPIRIN [Concomitant]
     Indication: PRODUCT USED FOR UNKNOWN INDICATION
  2. VENTOLIN HFA [Concomitant]
     Indication: BRONCHOSPASM
  3. SEREVENT [Concomitant]
     Indication: BRONCHOSPASM
     Dosage: UNK, BID
  4. PREDNISONE [Concomitant]
     Indication: BRONCHOSPASM
  5. XOLAIR [Suspect]
     Indication: ASTHMA
     Dosage: 150 MG, Q4W
     Route: 058
     Dates: start: 20071102

REACTIONS (7)
  - DIZZINESS [None]
  - COUGH [None]
  - SINUSITIS [None]
  - RHINORRHOEA [None]
  - INFLUENZA [None]
  - BRONCHITIS [None]
  - BRONCHOSPASM [None]
